FAERS Safety Report 5119180-8 (Version None)
Quarter: 2006Q3

REPORT INFORMATION
  Report Type: 
  Country: None (occurrence: None)
  Receive Date: 20060929
  Receipt Date: 20060929
  Transmission Date: 20061208
  Serious: Yes (Life-Threatening, Hospitalization, Disabling, Other)
  Sender: FDA-Public Use
  Company Number: None

PATIENT
  Age: 57 Year
  Sex: Male

DRUGS (2)
  1. METRONIDAZOLE [Suspect]
     Dosage: 500MG   TID   PO
     Route: 048
     Dates: start: 20060607, end: 20060620
  2. VANCOMYCIN [Suspect]
     Dosage: 1250MG   QD   IV
     Route: 042
     Dates: start: 20060506, end: 20060619

REACTIONS (9)
  - APPENDICITIS [None]
  - CLOSTRIDIUM DIFFICILE COLITIS [None]
  - COLITIS [None]
  - COLITIS ISCHAEMIC [None]
  - DIARRHOEA [None]
  - GASTROINTESTINAL DISORDER [None]
  - LARGE INTESTINE PERFORATION [None]
  - MEGACOLON [None]
  - SYSTEMIC INFLAMMATORY RESPONSE SYNDROME [None]
